FAERS Safety Report 4438558-9 (Version None)
Quarter: 2004Q3

REPORT INFORMATION
  Report Type: 
  Country: None (occurrence: None)
  Receive Date: 20040728
  Receipt Date: 20040128
  Transmission Date: 20050211
  Serious: No
  Sender: FDA-Public Use
  Company Number: USA040157837

PATIENT
  Age: 20 Year
  Sex: Male
  Weight: 68 kg

DRUGS (2)
  1. STRATTERA [Suspect]
     Indication: ATTENTION DEFICIT/HYPERACTIVITY DISORDER
     Dosage: 80 MG/1 DAY
     Dates: start: 20040107, end: 20040128
  2. PROZAC [Suspect]
     Indication: OBSESSIVE-COMPULSIVE DISORDER
     Dosage: 60 MG/1 DAY
     Dates: start: 20030602

REACTIONS (3)
  - DRUG INTERACTION [None]
  - HEART RATE INCREASED [None]
  - HEART RATE IRREGULAR [None]
